FAERS Safety Report 5642807-9 (Version None)
Quarter: 2008Q1

REPORT INFORMATION
  Report Type: 
  Country: None (occurrence: None)
  Receive Date: 20080227
  Receipt Date: 20080227
  Transmission Date: 20080703
  Serious: Yes (Hospitalization)
  Sender: FDA-Public Use
  Company Number: None

PATIENT
  Age: 78 Year
  Sex: Male
  Weight: 104.3 kg

DRUGS (7)
  1. TAXOL [Suspect]
     Indication: NON-SMALL CELL LUNG CANCER
     Dosage: 440MG, Q21 DAYS IV
     Route: 042
     Dates: start: 20080128
  2. CARBOPLATIN [Suspect]
     Indication: NON-SMALL CELL LUNG CANCER
     Dosage: 756MG, Q21 DAYS IV
     Route: 042
     Dates: start: 20080128
  3. LISINOPRIL [Concomitant]
  4. MOVE FREE [Concomitant]
  5. ASPIRIN [Concomitant]
  6. PERI-COLACE [Concomitant]
  7. DURAGESIC-100 [Concomitant]

REACTIONS (3)
  - OESOPHAGEAL CANDIDIASIS [None]
  - ORAL INTAKE REDUCED [None]
  - PANCYTOPENIA [None]
